FAERS Safety Report 6925374-9 (Version None)
Quarter: 2010Q3

REPORT INFORMATION
  Report Type: 
  Country: None (occurrence: None)
  Receive Date: 20100811
  Receipt Date: 20100726
  Transmission Date: 20110219
  Serious: Yes (Life-Threatening, Hospitalization)
  Sender: FDA-Public Use
  Company Number: AUR-APL-2010-01570

PATIENT
  Age: 35 Year
  Sex: Female

DRUGS (4)
  1. MIRTAZAPINE [Suspect]
     Dosage: 7.5MG, DAILY, ORAL
     Route: 048
     Dates: start: 20100324, end: 20100329
  2. ZELDOX CAPSULE, HARD [Suspect]
     Dosage: 80MG, DAILY, ORAL;  100MG -DAILY -ORAL
     Route: 048
     Dates: end: 20100325
  3. ZELDOX CAPSULE, HARD [Suspect]
     Dosage: 80MG, DAILY, ORAL;  100MG -DAILY -ORAL
     Route: 048
     Dates: start: 20100326, end: 20100331
  4. LORAZEPAM [Concomitant]

REACTIONS (8)
  - ABNORMAL BEHAVIOUR [None]
  - AGITATION [None]
  - CONDITION AGGRAVATED [None]
  - FEELING GUILTY [None]
  - MIDDLE INSOMNIA [None]
  - RESTLESSNESS [None]
  - SCHIZOPHRENIA, PARANOID TYPE [None]
  - SUICIDE ATTEMPT [None]
